FAERS Safety Report 13505465 (Version 2)
Quarter: 2017Q3

REPORT INFORMATION
  Report Type: Spontaneous
  Country: US (occurrence: US)
  Receive Date: 20170502
  Receipt Date: 20170803
  Transmission Date: 20171127
  Serious: Yes (Other)
  Sender: FDA-Public Use
  Company Number: US-009507513-1704USA013502

PATIENT
  Age: 37 Year
  Sex: Female
  Weight: 57.6 kg

DRUGS (2)
  1. NEXPLANON [Suspect]
     Active Substance: ETONOGESTREL
     Indication: CONTRACEPTION
     Dosage: 1 DF, EVERY THREE YEARS
     Route: 059
     Dates: start: 20140513, end: 20170718
  2. NEXPLANON [Suspect]
     Active Substance: ETONOGESTREL
     Dosage: 1 DF, EVERY THREE YEARS
     Route: 059

REACTIONS (5)
  - General anaesthesia [Recovered/Resolved]
  - Complication associated with device [Recovered/Resolved]
  - Incorrect drug administration duration [Unknown]
  - Device deployment issue [Recovered/Resolved]
  - Complication of device removal [Recovered/Resolved]

NARRATIVE: CASE EVENT DATE: 20140513
